FAERS Safety Report 8353296-8 (Version None)
Quarter: 2012Q2

REPORT INFORMATION
  Report Type: 
  Country: None (occurrence: None)
  Receive Date: 20120511
  Receipt Date: 20120426
  Transmission Date: 20120825
  Serious: Yes (Hospitalization)
  Sender: FDA-Public Use
  Company Number: IT-BAYER-2012-046046

PATIENT
  Age: 60 Year
  Sex: Male

DRUGS (5)
  1. VASEXTEN [Concomitant]
     Dosage: UNK
     Dates: start: 20060413
  2. ATORVASTATIN CALCIUM [Concomitant]
     Dosage: UNK
     Dates: start: 20030401
  3. ASPIRIN [Suspect]
     Indication: PLATELET AGGREGATION INHIBITION
     Dosage: DAILY DOSE 100 MG
     Route: 048
     Dates: start: 20120401, end: 20120413
  4. CARVEDILOL [Concomitant]
     Dosage: UNK
     Dates: start: 20040401
  5. NAPROXEN SODIUM [Suspect]
     Indication: TOOTHACHE
     Dosage: DAILY DOSE 550 MG
     Route: 048
     Dates: start: 20120410, end: 20120413

REACTIONS (2)
  - GASTRIC ULCER [None]
  - HAEMATEMESIS [None]
